FAERS Safety Report 14318169 (Version 1)
Quarter: 2017Q4

REPORT INFORMATION
  Report Type: Other
  Country: US (occurrence: US)
  Receive Date: 20171222
  Receipt Date: 20171222
  Transmission Date: 20180321
  Serious: Yes (Hospitalization)
  Sender: FDA-Public Use
  Company Number: US-BRECKENRIDGE PHARMACEUTICAL, INC.-2037651

PATIENT
  Age: 45 Year
  Sex: Female

DRUGS (3)
  1. DULOXETINE. [Suspect]
     Active Substance: DULOXETINE
  2. GABAPENTIN. [Concomitant]
     Active Substance: GABAPENTIN
  3. NAPROXEN. [Concomitant]
     Active Substance: NAPROXEN

REACTIONS (8)
  - Dermatitis [Unknown]
  - Conjunctival hyperaemia [Unknown]
  - Toxic epidermal necrolysis [Unknown]
  - Cutaneous lupus erythematosus [Unknown]
  - Dermatitis bullous [Unknown]
  - Skin ulcer [Unknown]
  - Epidermal necrosis [Unknown]
  - Rash [Unknown]
